FAERS Safety Report 24005718 (Version 2)
Quarter: 2024Q3

REPORT INFORMATION
  Report Type: Spontaneous
  Country: RU (occurrence: RU)
  Receive Date: 20240624
  Receipt Date: 20240819
  Transmission Date: 20241017
  Serious: Yes (Other)
  Sender: BAYER
  Company Number: None

PATIENT
  Age: 69 Year
  Sex: Male
  Weight: 74 kg

DRUGS (2)
  1. ULTRAVIST [Suspect]
     Active Substance: IOPROMIDE
     Indication: Angiogram
     Dosage: 200 ML, ONCE
     Route: 042
     Dates: start: 20240528, end: 20240528
  2. LIDOCAINE HYDROCHLORIDE [Suspect]
     Active Substance: LIDOCAINE HYDROCHLORIDE
     Indication: Local anaesthesia
     Dosage: 4 ML, INFILTRATIVE INJECTION, ONCE
     Dates: start: 20240528, end: 20240528

REACTIONS (2)
  - Blood creatinine increased [Recovering/Resolving]
  - Blood urea increased [Recovering/Resolving]

NARRATIVE: CASE EVENT DATE: 20240528
